FAERS Safety Report 7598015-8 (Version None)
Quarter: 2011Q3

REPORT INFORMATION
  Report Type: 
  Country: None (occurrence: None)
  Receive Date: 20110708
  Receipt Date: 20110630
  Transmission Date: 20111222
  Serious: Yes (Hospitalization)
  Sender: FDA-Public Use
  Company Number: BR-MEDIMMUNE-MEDI-0013308

PATIENT
  Sex: Male
  Weight: 3.1 kg

DRUGS (4)
  1. FOLIC ACID [Concomitant]
     Route: 048
     Dates: start: 20110204
  2. FERROUS SULFATE TAB [Concomitant]
     Route: 048
     Dates: start: 20110204
  3. SYNAGIS [Suspect]
  4. PROTOVIT [Concomitant]
     Route: 048
     Dates: start: 20110204

REACTIONS (5)
  - INFLUENZA [None]
  - COUGH [None]
  - BRONCHIOLITIS [None]
  - INCREASED BRONCHIAL SECRETION [None]
  - RHINORRHOEA [None]
